FAERS Safety Report 8862141 (Version 1)
Quarter: 2012Q4

REPORT INFORMATION
  Report Type: 
  Country: FR (occurrence: FR)
  Receive Date: 20121026
  Receipt Date: 20121026
  Transmission Date: 20130627
  Serious: Yes (Hospitalization)
  Sender: FDA-Public Use
  Company Number: FR-PFIZER INC-2012266397

PATIENT
  Age: 78 Year
  Sex: Female

DRUGS (14)
  1. CORDARONE [Suspect]
     Indication: ARRHYTHMIA SUPRAVENTRICULAR
     Dosage: UNK, daily
     Route: 048
     Dates: start: 20120715, end: 20120715
  2. CORDARONE [Interacting]
     Dosage: 400 mg, daily
     Route: 048
     Dates: start: 201207
  3. CORDARONE [Interacting]
     Dosage: 200 mg, daily
     Route: 048
  4. LOVENOX [Suspect]
     Indication: ARRHYTHMIA SUPRAVENTRICULAR
     Dosage: 0.6 ml, 2x/day
     Route: 058
     Dates: start: 20120715
  5. COUMADINE [Suspect]
     Indication: ARRHYTHMIA SUPRAVENTRICULAR
     Dosage: 4 mg, daily
     Route: 048
     Dates: start: 20120716, end: 20120718
  6. COUMADINE [Suspect]
     Dosage: 5mg, daily
     Route: 048
     Dates: start: 20120719
  7. INEXIUM [Interacting]
     Indication: PRODUCT USED FOR UNKNOWN INDICATION
     Dosage: 20 mg, daily
     Route: 048
  8. BISOPROLOL [Suspect]
     Indication: PRODUCT USED FOR UNKNOWN INDICATION
     Dosage: 5mg, daily
     Route: 048
     Dates: start: 201207
  9. CALCIUM CARBONATE [Suspect]
     Indication: PRODUCT USED FOR UNKNOWN INDICATION
     Dosage: 1 DF, daily
     Route: 048
     Dates: start: 201207
  10. LEXOMIL [Suspect]
     Indication: PRODUCT USED FOR UNKNOWN INDICATION
     Dosage: 0.25 units, UNK
     Route: 048
     Dates: start: 201207
  11. CARDENSIEL [Concomitant]
  12. KARDEGIC [Concomitant]
  13. CACIT D3 [Concomitant]
  14. MOVICOL [Concomitant]
     Dosage: UNK
     Dates: start: 201207

REACTIONS (2)
  - Drug interaction [Unknown]
  - Abdominal wall haematoma [Recovering/Resolving]
